FAERS Safety Report 4489427-X (Version None)
Quarter: 2004Q4

REPORT INFORMATION
  Report Type: 
  Country: None (occurrence: None)
  Receive Date: 20041026
  Receipt Date: 20041013
  Transmission Date: 20050328
  Serious: Yes (Hospitalization, Other)
  Sender: FDA-Public Use
  Company Number: JP_031002016

PATIENT
  Age: 70 Year
  Sex: Male
  Weight: 60 kg

DRUGS (4)
  1. GEMZAR [Suspect]
     Indication: PANCREATIC CARCINOMA
     Dosage: 600 MG OTHER
     Dates: start: 20030314, end: 20031002
  2. CARVEDILOL [Concomitant]
  3. NITRODERM [Concomitant]
  4. LASIX [Concomitant]

REACTIONS (11)
  - ANAEMIA [None]
  - ASCITES [None]
  - CARDIAC FAILURE ACUTE [None]
  - CARDIOMEGALY [None]
  - DRUG TOXICITY [None]
  - FACE OEDEMA [None]
  - GENERALISED OEDEMA [None]
  - HAEMOLYTIC URAEMIC SYNDROME [None]
  - PERICARDIAL EFFUSION [None]
  - PLEURAL EFFUSION [None]
  - RENAL FAILURE ACUTE [None]
